FAERS Safety Report 7630032-1 (Version None)
Quarter: 2011Q3

REPORT INFORMATION
  Report Type: 
  Country: None (occurrence: None)
  Receive Date: 20110715
  Receipt Date: 20110701
  Transmission Date: 20111222
  Serious: Yes (Hospitalization)
  Sender: FDA-Public Use
  Company Number: FR-2011-1559

PATIENT
  Age: 68 Year
  Sex: Male

DRUGS (9)
  1. ASPIRIN [Concomitant]
  2. EXELON [Concomitant]
  3. PERINDOPRIL ERBUMINE [Concomitant]
  4. AMARYL [Concomitant]
  5. TAMSULOSIN HCL [Concomitant]
  6. SOLUPPED [Concomitant]
  7. ZOLOFT [Concomitant]
  8. NAVELBINE [Suspect]
     Indication: BRONCHIAL CARCINOMA
     Dosage: 110 MG IV
     Route: 042
     Dates: start: 20110217, end: 20110217
  9. CRESTOR [Concomitant]

REACTIONS (1)
  - HEMIPARESIS [None]
